FAERS Safety Report 6277905-2 (Version None)
Quarter: 2009Q3

REPORT INFORMATION
  Report Type: 
  Country: None (occurrence: None)
  Receive Date: 20090722
  Receipt Date: 20090720
  Transmission Date: 20100115
  Serious: Yes (Other)
  Sender: FDA-Public Use
  Company Number: US-B.I. PHARMACEUTICALS,INC./RIDGEFIELD-2009-BP-08583BP

PATIENT
  Age: 70 Year
  Sex: Female

DRUGS (4)
  1. FLOMAX [Suspect]
     Indication: URINARY RETENTION
     Dosage: 0.4 MG
     Route: 048
     Dates: start: 20090716, end: 20090720
  2. MAXIPIME [Concomitant]
     Indication: INTERVERTEBRAL DISCITIS
  3. VANCOMYCIN [Concomitant]
     Indication: INTERVERTEBRAL DISCITIS
  4. EVISTA [Concomitant]
     Indication: OSTEOPOROSIS

REACTIONS (4)
  - DELIRIUM [None]
  - DELUSIONAL DISORDER, UNSPECIFIED TYPE [None]
  - DISORIENTATION [None]
  - HALLUCINATION [None]
